FAERS Safety Report 7209907-3 (Version None)
Quarter: 2011Q1

REPORT INFORMATION
  Report Type: 
  Country: None (occurrence: None)
  Receive Date: 20110105
  Receipt Date: 20101227
  Transmission Date: 20110831
  Serious: Yes (Hospitalization)
  Sender: FDA-Public Use
  Company Number: US-BIOGENIDEC-2010BI043569

PATIENT
  Age: 63 Year
  Sex: Female
  Weight: 58 kg

DRUGS (5)
  1. AVONEX [Suspect]
     Indication: MULTIPLE SCLEROSIS
     Route: 030
     Dates: start: 20000101
  2. AVONEX [Suspect]
     Route: 030
     Dates: start: 20030101
  3. RITALIN [Concomitant]
     Indication: FATIGUE
  4. BACLOFEN [Concomitant]
     Indication: MUSCLE SPASMS
  5. CITALOPRAM [Concomitant]

REACTIONS (3)
  - HIP FRACTURE [None]
  - MUSCLE SPASMS [None]
  - FALL [None]
